FAERS Safety Report 4830583-9 (Version None)
Quarter: 2005Q4

REPORT INFORMATION
  Report Type: 
  Country: None (occurrence: None)
  Receive Date: 20051115
  Receipt Date: 20051102
  Transmission Date: 20060501
  Serious: Yes (Other)
  Sender: FDA-Public Use
  Company Number: 2005124552

PATIENT
  Age: 64 Year
  Sex: Male

DRUGS (4)
  1. NEURONTIN [Suspect]
     Indication: NEURALGIA
     Dosage: 400 MG (100 MG, 1 IN AM, 2 IN MID-DAY, 1 IN PM), ORAL
     Route: 048
     Dates: start: 20050810, end: 20050827
  2. ISOPTIN [Concomitant]
  3. TRYPTIZOL (AMITRIPTYLINE HYDROCHLORIDE) [Concomitant]
  4. NOZINAN (LEVOMEPROMAZINE) [Concomitant]

REACTIONS (10)
  - CUTIS LAXA [None]
  - ERYTHEMA [None]
  - FEELING HOT [None]
  - HYPOAESTHESIA [None]
  - OEDEMA PERIPHERAL [None]
  - PAIN [None]
  - RASH [None]
  - SCAB [None]
  - SKIN DISORDER [None]
  - SKIN ULCER [None]
